FAERS Safety Report 4642913-1 (Version None)
Quarter: 2005Q2

REPORT INFORMATION
  Report Type: 
  Country: None (occurrence: None)
  Receive Date: 20050421
  Receipt Date: 20050408
  Transmission Date: 20051028
  Serious: Yes (Hospitalization, Other)
  Sender: FDA-Public Use
  Company Number: HQWYE955311APR05

PATIENT
  Age: 88 Year
  Sex: Female

DRUGS (9)
  1. CORDARONE [Suspect]
     Indication: ARRHYTHMIA
     Dosage: 200 MG 1X PER 1 DAY ORAL
     Route: 048
     Dates: start: 20041026
  2. DUPHALAC [Suspect]
     Dosage: SEE IMAGE
     Route: 048
     Dates: start: 20050115, end: 20050118
  3. DUPHALAC [Suspect]
     Dosage: SEE IMAGE
     Route: 048
     Dates: start: 20050125, end: 20050126
  4. DUPHALAC [Suspect]
     Dosage: SEE IMAGE
     Route: 048
     Dates: start: 20050130, end: 20050201
  5. DUPHALAC [Suspect]
     Dosage: SEE IMAGE
     Route: 048
     Dates: start: 20050206, end: 20050209
  6. SINTROM [Suspect]
     Dosage: SEE IMAGE
     Route: 048
     Dates: start: 20050119, end: 20050120
  7. SINTROM [Suspect]
     Dosage: SEE IMAGE
     Route: 048
     Dates: start: 20050121, end: 20050130
  8. SINTROM [Suspect]
     Dosage: SEE IMAGE
     Route: 048
     Dates: start: 20050202, end: 20050206
  9. SINTROM [Suspect]
     Dosage: SEE IMAGE
     Route: 048
     Dates: start: 20050208

REACTIONS (4)
  - DRUG INTERACTION [None]
  - HYPOPROTHROMBINAEMIA [None]
  - INTERNATIONAL NORMALISED RATIO INCREASED [None]
  - PULMONARY EMBOLISM [None]
